FAERS Safety Report 10049480 (Version 1)
Quarter: 2014Q2

REPORT INFORMATION
  Report Type: Other
  Country: CO (occurrence: CO)
  Receive Date: 20140401
  Receipt Date: 20140401
  Transmission Date: 20141212
  Serious: Yes (Hospitalization)
  Sender: FDA-Public Use
  Company Number: CO-SHIRE-CO201400862

PATIENT
  Sex: Male
  Weight: 31 kg

DRUGS (1)
  1. VPRIV [Suspect]
     Indication: GAUCHER^S DISEASE
     Dosage: ^6^ EVERY 15 DAYS
     Route: 041
     Dates: start: 20130215

REACTIONS (2)
  - Osteomyelitis [Recovering/Resolving]
  - Abscess limb [Recovering/Resolving]
